FAERS Safety Report 21171521 (Version 1)
Quarter: 2022Q3

REPORT INFORMATION
  Report Type: Spontaneous
  Country: DK (occurrence: DK)
  Receive Date: 20220804
  Receipt Date: 20220804
  Transmission Date: 20221026
  Serious: Yes (Other)
  Sender: FDA-Public Use
  Company Number: DK-NOVARTISPH-NVSC2022DK172143

PATIENT
  Age: 43 Year
  Sex: Female

DRUGS (4)
  1. LAMOTRIGINE [Suspect]
     Active Substance: LAMOTRIGINE
     Indication: Bipolar I disorder
     Dosage: 25 MG, QD
     Route: 065
     Dates: start: 20220613
  2. LAMOTRIGINE [Suspect]
     Active Substance: LAMOTRIGINE
     Indication: Mood swings
  3. ESCITALOPRAM [Concomitant]
     Active Substance: ESCITALOPRAM OXALATE
     Indication: Bipolar I disorder
     Dosage: 2.5 MG
     Route: 065
  4. ESCITALOPRAM [Concomitant]
     Active Substance: ESCITALOPRAM OXALATE
     Indication: Mood swings

REACTIONS (8)
  - Dystonia [Unknown]
  - Dyskinesia [Unknown]
  - Muscle spasms [Unknown]
  - Increased appetite [Unknown]
  - Weight increased [Unknown]
  - Thinking abnormal [Unknown]
  - Oromandibular dystonia [Recovered/Resolved]
  - Anxiety [Unknown]
